FAERS Safety Report 6263598-7 (Version None)
Quarter: 2009Q3

REPORT INFORMATION
  Report Type: 
  Country: None (occurrence: None)
  Receive Date: 20090710
  Receipt Date: 20090519
  Transmission Date: 20100115
  Serious: No
  Sender: FDA-Public Use
  Company Number: A0786487A

PATIENT
  Sex: Female

DRUGS (1)
  1. TYKERB [Suspect]
     Indication: DRUG USE FOR UNKNOWN INDICATION
     Dosage: 4TAB PER DAY
     Route: 065
     Dates: start: 20090515

REACTIONS (2)
  - FATIGUE [None]
  - MUSCLE SPASMS [None]
